FAERS Safety Report 8267070-4 (Version None)
Quarter: 2012Q2

REPORT INFORMATION
  Report Type: 
  Country: None (occurrence: None)
  Receive Date: 20120409
  Receipt Date: 20120402
  Transmission Date: 20120825
  Serious: Yes (Death, Other)
  Sender: FDA-Public Use
  Company Number: US-BAYER-200939826NA

PATIENT
  Age: 49 Year
  Sex: Male
  Weight: 70.295 kg

DRUGS (14)
  1. LOPRESSOR [Concomitant]
     Dosage: 25 MG TWICE DAILY
     Route: 048
     Dates: start: 20040131
  2. GENTAMICIN [Concomitant]
     Dosage: 60 MG
     Route: 042
     Dates: start: 20040227
  3. DOPAMINE HCL [Concomitant]
     Dosage: UNK
     Route: 042
     Dates: start: 20040227
  4. LISINOPRIL [Concomitant]
     Dosage: 10 MG DAILY
     Route: 048
     Dates: start: 20040131
  5. LASIX [Concomitant]
     Dosage: 40 MG DAILY
     Route: 048
     Dates: start: 20040201
  6. NIPRIDE [Concomitant]
     Dosage: UNK
     Route: 042
     Dates: start: 20040227
  7. DIPRIVAN [Concomitant]
     Dosage: UNK
     Route: 042
     Dates: start: 20040227
  8. VERSED [Concomitant]
     Dosage: UNK
     Dates: start: 20040227, end: 20040227
  9. HEPARIN [Concomitant]
     Dosage: 21000 IU
     Route: 042
     Dates: start: 20040227, end: 20040227
  10. DECADRON [Concomitant]
     Dosage: 10 MG
     Route: 042
     Dates: start: 20040227, end: 20040227
  11. PROTAMINE SULFATE [Concomitant]
     Dosage: 500 MG
     Route: 042
     Dates: start: 20040227, end: 20040227
  12. TRASYLOL [Suspect]
     Indication: AORTIC VALVE REPLACEMENT
     Dosage: 200 ML PUMP PRIME, APROTININ FULL DOSE AS PER ANESTHESIA
     Route: 042
     Dates: start: 20040227, end: 20040227
  13. MAGNESIUM SULFATE [Concomitant]
     Dosage: 1 G
     Route: 042
     Dates: start: 20040227
  14. ANCEF [Concomitant]
     Dosage: 2 G
     Route: 042
     Dates: start: 20040227, end: 20040227

REACTIONS (13)
  - RENAL INJURY [None]
  - STRESS [None]
  - ANHEDONIA [None]
  - PAIN [None]
  - MULTI-ORGAN FAILURE [None]
  - EMOTIONAL DISTRESS [None]
  - DEATH [None]
  - RENAL IMPAIRMENT [None]
  - UNEVALUABLE EVENT [None]
  - INJURY [None]
  - ANXIETY [None]
  - RENAL FAILURE [None]
  - FEAR [None]
